FAERS Safety Report 26025525 (Version 1)
Quarter: 2025Q4

REPORT INFORMATION
  Report Type: Spontaneous
  Country: US (occurrence: US)
  Receive Date: 20251111
  Receipt Date: 20251111
  Transmission Date: 20260117
  Serious: No
  Sender: BRISTOL-MYERS SQUIBB COMPANY
  Company Number: US-BRISTOL-MYERS SQUIBB COMPANY-2025-152747

PATIENT
  Age: 78 Year
  Sex: Female
  Weight: 81.65 kg

DRUGS (1)
  1. CAMZYOS [Suspect]
     Active Substance: MAVACAMTEN
     Indication: Hypertrophic cardiomyopathy
     Route: 048
     Dates: start: 20250603

REACTIONS (3)
  - Alopecia [Unknown]
  - Hiccups [Unknown]
  - Confusional state [Unknown]

NARRATIVE: CASE EVENT DATE: 20251110
